FAERS Safety Report 4505984-9 (Version None)
Quarter: 2004Q4

REPORT INFORMATION
  Report Type: 
  Country: None (occurrence: None)
  Receive Date: 20041025
  Receipt Date: 20031001
  Transmission Date: 20050328
  Serious: Yes (Other)
  Sender: FDA-Public Use
  Company Number: US-JNJFOC-20031000436

PATIENT
  Age: 49 Year
  Sex: Female

DRUGS (24)
  1. REMICADE [Suspect]
     Indication: RHEUMATOID ARTHRITIS
     Dosage: 300 MG, INTRAVENOUS
     Route: 042
     Dates: start: 20020301, end: 20030801
  2. TYLENOL W/ CODEINE NO. 3 [Concomitant]
  3. ALLEGRA-D [Concomitant]
  4. PHENERGAN [Concomitant]
  5. RANITIDINE [Concomitant]
  6. MACROBID [Concomitant]
  7. PREDNISONE [Concomitant]
  8. RELAFEN [Concomitant]
  9. LIPITOR [Concomitant]
  10. SLO-K (POTASSIUM CHLORIDE) [Concomitant]
  11. DYAZIDE [Concomitant]
  12. CORGARD [Concomitant]
  13. FUROSEMIDE [Concomitant]
  14. METHOTREXATE [Concomitant]
  15. ATIVAN [Concomitant]
  16. GLYNASE [Concomitant]
  17. NEXIUM [Concomitant]
  18. ACTOS [Concomitant]
  19. ZYRTEC D (CETIRIZINE HYDROCHLORIDE) [Concomitant]
  20. MIACALCIN NS (CALCITONIN, SALMON) [Concomitant]
  21. LO OVRAL (EUGYNON) [Concomitant]
  22. FOLIC ACID [Concomitant]
  23. ALBUTEROL [Concomitant]
  24. ZPACK (AZITHROMYCIN) [Concomitant]

REACTIONS (2)
  - FUNGAEMIA [None]
  - MENINGITIS CRYPTOCOCCAL [None]
